FAERS Safety Report 19943533 (Version 1)
Quarter: 2021Q4

REPORT INFORMATION
  Report Type: Spontaneous
  Country: US (occurrence: US)
  Receive Date: 20211009
  Receipt Date: 20211009
  Transmission Date: 20220303
  Serious: No
  Sender: FDA-Public Use
  Company Number: None

PATIENT
  Age: 55 Year
  Sex: Male
  Weight: 108 kg

DRUGS (6)
  1. AIMOVIG [Suspect]
     Active Substance: ERENUMAB-AOOE
     Indication: Migraine prophylaxis
     Dosage: OTHER FREQUENCY:MONTHLY;
     Route: 030
     Dates: start: 20210909, end: 20210909
  2. VOLTAREN [Concomitant]
     Active Substance: DICLOFENAC SODIUM
  3. PROTONIX [Concomitant]
     Active Substance: PANTOPRAZOLE SODIUM
  4. UBRELVY [Concomitant]
     Active Substance: UBROGEPANT
  5. FLAXSEED [Concomitant]
     Active Substance: FLAX SEED
  6. MULTI-VITAMIN [Concomitant]
     Active Substance: .ALPHA.-TOCOPHEROL ACETATE, DL-\ASCORBIC ACID\CYANOCOBALAMIN\FLUORIDE ION\FOLIC ACID\NIACIN\PYRIDOXI

REACTIONS (1)
  - Hypertension [None]

NARRATIVE: CASE EVENT DATE: 20210909
